FAERS Safety Report 25235833 (Version 1)
Quarter: 2025Q2

REPORT INFORMATION
  Report Type: Spontaneous
  Country: JP (occurrence: JP)
  Receive Date: 20250424
  Receipt Date: 20250424
  Transmission Date: 20250716
  Serious: Yes (Death)
  Sender: ROCHE
  Company Number: JP-ROCHE-10000266976

PATIENT
  Age: 4 Decade
  Sex: Male

DRUGS (1)
  1. ALECENSA [Suspect]
     Active Substance: ALECTINIB HYDROCHLORIDE
     Indication: Rhabdomyosarcoma
     Route: 048

REACTIONS (2)
  - Rhabdomyosarcoma [Fatal]
  - Off label use [Unknown]
